FAERS Safety Report 19500360 (Version 11)
Quarter: 2022Q2

REPORT INFORMATION
  Report Type: Spontaneous
  Country: GB (occurrence: GB)
  Receive Date: 20210707
  Receipt Date: 20220517
  Transmission Date: 20220720
  Serious: Yes (Hospitalization, Other)
  Sender: FDA-Public Use
  Company Number: GB-PFIZER INC-2019511224

PATIENT
  Age: 68 Year
  Sex: Female
  Weight: 92 kg

DRUGS (132)
  1. ENBREL [Suspect]
     Active Substance: ETANERCEPT
     Indication: Rheumatoid arthritis
     Dosage: 50 MG, QW, MYCLIC PEN
     Route: 058
     Dates: start: 20100917
  2. ENBREL [Suspect]
     Active Substance: ETANERCEPT
     Dosage: 50 MG, QW, MYCLIC PEN
     Route: 058
     Dates: start: 20100917
  3. METHOTREXATE SODIUM [Suspect]
     Active Substance: METHOTREXATE SODIUM
     Indication: Rheumatoid arthritis
     Dosage: (AT 17.5, WEEKLY)
     Route: 065
     Dates: start: 20100917
  4. METHOTREXATE SODIUM [Suspect]
     Active Substance: METHOTREXATE SODIUM
     Dosage: UNK UNK, WEEKLY
     Route: 065
  5. METHOTREXATE SODIUM [Suspect]
     Active Substance: METHOTREXATE SODIUM
     Dosage: 18 MG, WEEKLY AT 17.5, WEEKLY
     Route: 065
     Dates: start: 20100917
  6. METHOTREXATE SODIUM [Suspect]
     Active Substance: METHOTREXATE SODIUM
     Dosage: 17.5 MILLIGRAM, Q.W., UNK UNK, Q.W., WEEKLY, AT 17.5
     Route: 065
     Dates: start: 20100917
  7. METHOTREXATE SODIUM [Suspect]
     Active Substance: METHOTREXATE SODIUM
     Dosage: 18 MG, WEEKLY
     Route: 065
     Dates: start: 20100917
  8. CIPROFLOXACIN HYDROCHLORIDE [Suspect]
     Active Substance: CIPROFLOXACIN HYDROCHLORIDE
     Indication: Abdominal discomfort
     Dosage: 1000 MG, DAILY
     Route: 065
     Dates: start: 20100917
  9. CIPROFLOXACIN HYDROCHLORIDE [Suspect]
     Active Substance: CIPROFLOXACIN HYDROCHLORIDE
     Indication: Depression
     Dosage: 1000 MG, DAILY
     Route: 065
     Dates: start: 20100917
  10. CIPROFLOXACIN HYDROCHLORIDE [Suspect]
     Active Substance: CIPROFLOXACIN HYDROCHLORIDE
     Indication: Rheumatoid arthritis
     Dosage: 1000 MG, 1X/DAY
     Route: 065
     Dates: start: 20100917
  11. CIPROFLOXACIN HYDROCHLORIDE [Suspect]
     Active Substance: CIPROFLOXACIN HYDROCHLORIDE
     Dosage: UNK
     Route: 065
  12. CIPROFLOXACIN HYDROCHLORIDE [Suspect]
     Active Substance: CIPROFLOXACIN HYDROCHLORIDE
     Dosage: 1000 MG, DAILY
     Route: 065
     Dates: start: 20200917
  13. CIPROFLOXACIN HYDROCHLORIDE [Suspect]
     Active Substance: CIPROFLOXACIN HYDROCHLORIDE
     Dosage: 1000 MG, DAILY
     Route: 065
  14. IRBESARTAN [Suspect]
     Active Substance: IRBESARTAN
     Indication: Abdominal discomfort
     Dosage: 150 G, DAILY
     Route: 065
     Dates: start: 20100912
  15. IRBESARTAN [Suspect]
     Active Substance: IRBESARTAN
     Dosage: 150 MG
     Route: 065
     Dates: start: 20100917
  16. IRBESARTAN [Suspect]
     Active Substance: IRBESARTAN
     Dosage: 150 G, DAILY
     Route: 065
     Dates: start: 20100917
  17. IRBESARTAN [Suspect]
     Active Substance: IRBESARTAN
     Dosage: 150 G, DAILY
     Route: 065
     Dates: start: 20100917
  18. IRBESARTAN [Suspect]
     Active Substance: IRBESARTAN
     Dosage: 150 G, DAILY
     Route: 065
     Dates: start: 20100917
  19. IRBESARTAN [Suspect]
     Active Substance: IRBESARTAN
     Dosage: UNK
     Route: 065
  20. IRBESARTAN [Suspect]
     Active Substance: IRBESARTAN
     Dosage: 150 G, DAILY
     Route: 065
     Dates: start: 20100917
  21. OMEPRAZOLE [Suspect]
     Active Substance: OMEPRAZOLE
     Indication: Abdominal discomfort
     Dosage: 20 MG, 2X/DAY
     Route: 065
     Dates: start: 20100917
  22. OMEPRAZOLE [Suspect]
     Active Substance: OMEPRAZOLE
     Indication: Gastric disorder
     Dosage: 20 MG, 1X/DAY
     Route: 065
     Dates: start: 20100917
  23. OMEPRAZOLE [Suspect]
     Active Substance: OMEPRAZOLE
     Dosage: 20 MG, 2X/DAY
     Route: 065
     Dates: start: 20100917
  24. OMEPRAZOLE [Suspect]
     Active Substance: OMEPRAZOLE
     Dosage: 480 MILLIGRAM DAILY; 20 MG, 2X/DAY
     Route: 065
  25. OMEPRAZOLE [Suspect]
     Active Substance: OMEPRAZOLE
     Dosage: 480 MILLIGRAM DAILY; 20 MG, 2X/DAY
     Route: 065
  26. OMEPRAZOLE [Suspect]
     Active Substance: OMEPRAZOLE
     Dosage: 480 MILLIGRAM DAILY; 20 MG, 2X/DAY
     Route: 065
  27. OMEPRAZOLE [Suspect]
     Active Substance: OMEPRAZOLE
     Dosage: 20 MG, 4 TIMES PER DAY
     Route: 065
     Dates: start: 20200917
  28. OMEPRAZOLE [Suspect]
     Active Substance: OMEPRAZOLE
     Dosage: 20 MG, 4 TIMES PER DAY
     Route: 065
     Dates: start: 20200917
  29. OMEPRAZOLE [Suspect]
     Active Substance: OMEPRAZOLE
     Dosage: 80 MG, 1X/DAY
     Route: 065
     Dates: start: 20100917
  30. OMEPRAZOLE [Suspect]
     Active Substance: OMEPRAZOLE
     Dosage: 80 MG, 1X/DAY
     Route: 065
     Dates: start: 20100917
  31. CARBOCYSTEINE [Suspect]
     Active Substance: CARBOCYSTEINE
     Indication: Product used for unknown indication
     Dosage: 750 MG, DAILY
     Route: 065
     Dates: start: 20100917
  32. CARBOCYSTEINE [Suspect]
     Active Substance: CARBOCYSTEINE
     Dosage: 750 MILLIGRAM, QD
     Route: 065
     Dates: start: 20100917
  33. CARBOCYSTEINE [Suspect]
     Active Substance: CARBOCYSTEINE
     Dosage: UNK
     Route: 065
  34. CARBOCYSTEINE [Suspect]
     Active Substance: CARBOCYSTEINE
     Dosage: 750 MG, DAILY
     Route: 065
  35. CARBOCYSTEINE [Suspect]
     Active Substance: CARBOCYSTEINE
     Dosage: 750 MG, DAILY
     Route: 065
  36. CARBOCYSTEINE [Suspect]
     Active Substance: CARBOCYSTEINE
     Dosage: 750 MG, DAILY
     Route: 065
  37. CARBOCYSTEINE [Suspect]
     Active Substance: CARBOCYSTEINE
     Dosage: 750 MILLIGRAM, QD
     Route: 065
     Dates: start: 20200917
  38. CARBOCYSTEINE [Suspect]
     Active Substance: CARBOCYSTEINE
     Dosage: 750 MILLIGRAM
     Route: 065
     Dates: start: 20100917
  39. CARBOCYSTEINE [Suspect]
     Active Substance: CARBOCYSTEINE
     Dosage: 750 MG, DAILY
     Route: 065
  40. CARBOCYSTEINE [Suspect]
     Active Substance: CARBOCYSTEINE
     Dosage: UNK
     Route: 065
  41. CARBOCYSTEINE [Suspect]
     Active Substance: CARBOCYSTEINE
     Dosage: 750 MG, DAILY
     Route: 065
  42. CARBOCYSTEINE [Suspect]
     Active Substance: CARBOCYSTEINE
     Dosage: 750 MILLIGRAM, QD
     Route: 065
     Dates: start: 20200917
  43. VENLAFAXINE HYDROCHLORIDE [Suspect]
     Active Substance: VENLAFAXINE HYDROCHLORIDE
     Indication: Depression
     Dosage: 225 MG, 1X/DAY
     Route: 065
  44. VENLAFAXINE HYDROCHLORIDE [Suspect]
     Active Substance: VENLAFAXINE HYDROCHLORIDE
     Indication: Rheumatoid arthritis
     Dosage: 225 MG
     Route: 065
  45. VENLAFAXINE HYDROCHLORIDE [Suspect]
     Active Substance: VENLAFAXINE HYDROCHLORIDE
     Dosage: 225 MG, DAILY
     Route: 065
  46. VENLAFAXINE HYDROCHLORIDE [Suspect]
     Active Substance: VENLAFAXINE HYDROCHLORIDE
     Dosage: UNK  *SINGLE
     Route: 065
  47. PHYLLOCONTIN [Suspect]
     Active Substance: AMINOPHYLLINE
     Indication: Product used for unknown indication
     Dosage: 400 MG, DAILY
     Route: 065
     Dates: start: 20100917
  48. PHYLLOCONTIN [Suspect]
     Active Substance: AMINOPHYLLINE
     Dosage: 400 MILLIGRAM, QD
     Route: 065
     Dates: start: 20100917
  49. CARBAMAZEPINE [Suspect]
     Active Substance: CARBAMAZEPINE
     Indication: Product used for unknown indication
     Dosage: 750 MG, DAILY
     Route: 065
  50. CARBAMAZEPINE [Suspect]
     Active Substance: CARBAMAZEPINE
     Dosage: 750 MG, 1X/DAY
     Route: 065
  51. GUANIDINE [Suspect]
     Active Substance: GUANIDINE
     Indication: Abdominal discomfort
     Dosage: 1,3-DIPHENYLGUANIDINE
     Route: 065
  52. GUANIDINE [Suspect]
     Active Substance: GUANIDINE
     Indication: Depression
     Dosage: 1,3-DIPHENYLGUANIDINE
     Route: 065
  53. GUANIDINE [Suspect]
     Active Substance: GUANIDINE
     Dosage: 1,3-DIPHENYLGUANIDINE
     Route: 065
  54. GUANIDINE [Suspect]
     Active Substance: GUANIDINE
     Dosage: UNK
     Route: 065
  55. GUANIDINE [Suspect]
     Active Substance: GUANIDINE
     Dosage: 750 MG
     Route: 065
  56. GUANIDINE [Suspect]
     Active Substance: GUANIDINE
     Dosage: 750 MG, DAILY
     Route: 065
  57. ZINC [Suspect]
     Active Substance: ZINC
     Indication: Depression
     Dosage: 750 MG, DAILY
     Route: 065
  58. ZINC [Suspect]
     Active Substance: ZINC
     Indication: Abdominal discomfort
     Dosage: UNK
     Route: 065
  59. ZINC [Suspect]
     Active Substance: ZINC
     Dosage: UNK
     Route: 065
  60. ZINC [Suspect]
     Active Substance: ZINC
     Dosage: 750 MG, 1X/DAY
     Route: 065
  61. CABERGOLINE [Concomitant]
     Active Substance: CABERGOLINE
     Indication: Pituitary tumour
     Dosage: UNK
  62. CABERGOLINE [Concomitant]
     Active Substance: CABERGOLINE
     Indication: Empty sella syndrome
     Dosage: UNK
  63. CABERGOLINE [Concomitant]
     Active Substance: CABERGOLINE
     Dosage: UNK
  64. CABERGOLINE [Concomitant]
     Active Substance: CABERGOLINE
     Dosage: UNK
     Route: 065
  65. CABERGOLINE [Concomitant]
     Active Substance: CABERGOLINE
     Dosage: UNK
     Route: 065
  66. CABERGOLINE [Concomitant]
     Active Substance: CABERGOLINE
     Dosage: UNK
     Route: 065
  67. CABERGOLINE [Concomitant]
     Active Substance: CABERGOLINE
     Dosage: UNK
     Route: 065
  68. CABERGOLINE [Concomitant]
     Active Substance: CABERGOLINE
     Dosage: UNK
     Route: 065
  69. CABERGOLINE [Concomitant]
     Active Substance: CABERGOLINE
     Dosage: UNK
     Route: 065
  70. CABERGOLINE [Concomitant]
     Active Substance: CABERGOLINE
     Dosage: UNK
     Route: 065
  71. CABERGOLINE [Concomitant]
     Active Substance: CABERGOLINE
     Dosage: UNK
     Route: 065
  72. CABERGOLINE [Concomitant]
     Active Substance: CABERGOLINE
     Dosage: UNK
     Route: 065
  73. CABERGOLINE [Concomitant]
     Active Substance: CABERGOLINE
     Dosage: UNK
     Route: 065
  74. CABERGOLINE [Concomitant]
     Active Substance: CABERGOLINE
     Dosage: UNK
     Route: 065
  75. CABERGOLINE [Concomitant]
     Active Substance: CABERGOLINE
     Dosage: UNK
     Route: 065
  76. CABERGOLINE [Concomitant]
     Active Substance: CABERGOLINE
     Dosage: UNK
     Route: 065
  77. BENDROFLUMETHIAZIDE [Concomitant]
     Active Substance: BENDROFLUMETHIAZIDE
     Indication: Depression
     Dosage: UNK
  78. BENDROFLUMETHIAZIDE [Concomitant]
     Active Substance: BENDROFLUMETHIAZIDE
     Indication: Pituitary tumour
     Dosage: UNK
  79. BENDROFLUMETHIAZIDE [Concomitant]
     Active Substance: BENDROFLUMETHIAZIDE
     Dosage: UNK
  80. BENDROFLUMETHIAZIDE [Concomitant]
     Active Substance: BENDROFLUMETHIAZIDE
     Dosage: UNK
     Route: 065
  81. BENDROFLUMETHIAZIDE [Concomitant]
     Active Substance: BENDROFLUMETHIAZIDE
     Dosage: UNK
     Route: 065
  82. BENDROFLUMETHIAZIDE [Concomitant]
     Active Substance: BENDROFLUMETHIAZIDE
     Dosage: UNK
     Route: 065
  83. BENDROFLUMETHIAZIDE [Concomitant]
     Active Substance: BENDROFLUMETHIAZIDE
     Dosage: UNK
     Route: 065
  84. BENDROFLUMETHIAZIDE [Concomitant]
     Active Substance: BENDROFLUMETHIAZIDE
     Dosage: UNK
     Route: 065
  85. BENDROFLUMETHIAZIDE [Concomitant]
     Active Substance: BENDROFLUMETHIAZIDE
     Dosage: UNK
     Route: 065
  86. BENDROFLUMETHIAZIDE [Concomitant]
     Active Substance: BENDROFLUMETHIAZIDE
     Dosage: UNK
     Route: 065
  87. BENDROFLUMETHIAZIDE [Concomitant]
     Active Substance: BENDROFLUMETHIAZIDE
     Dosage: UNK
     Route: 065
  88. CETIRIZINE [Concomitant]
     Active Substance: CETIRIZINE HYDROCHLORIDE
     Indication: Abdominal discomfort
     Dosage: UNK
     Route: 065
  89. CETIRIZINE [Concomitant]
     Active Substance: CETIRIZINE HYDROCHLORIDE
     Indication: Abdominal discomfort
     Dosage: UNK
     Route: 065
  90. CETIRIZINE [Concomitant]
     Active Substance: CETIRIZINE HYDROCHLORIDE
     Dosage: UNK
     Route: 065
  91. CETIRIZINE [Concomitant]
     Active Substance: CETIRIZINE HYDROCHLORIDE
  92. CETIRIZINE [Concomitant]
     Active Substance: CETIRIZINE HYDROCHLORIDE
     Dosage: UNK
     Route: 065
  93. CETIRIZINE [Concomitant]
     Active Substance: CETIRIZINE HYDROCHLORIDE
     Dosage: UNK
     Route: 065
  94. CETIRIZINE [Concomitant]
     Active Substance: CETIRIZINE HYDROCHLORIDE
     Dosage: UNK
     Route: 065
  95. CETIRIZINE [Concomitant]
     Active Substance: CETIRIZINE HYDROCHLORIDE
     Dosage: UNK
     Route: 065
  96. EZETIMIBE [Concomitant]
     Active Substance: EZETIMIBE
     Dosage: UNK
  97. EZETIMIBE [Concomitant]
     Active Substance: EZETIMIBE
     Dosage: UNK
     Route: 065
  98. EZETIMIBE [Concomitant]
     Active Substance: EZETIMIBE
     Dosage: UNK
     Route: 065
  99. EZETIMIBE [Concomitant]
     Active Substance: EZETIMIBE
     Dosage: UNK
     Route: 065
  100. EZETIMIBE [Concomitant]
     Active Substance: EZETIMIBE
     Dosage: UNK
     Route: 065
  101. EZETIMIBE [Concomitant]
     Active Substance: EZETIMIBE
     Dosage: UNK
     Route: 065
  102. ORUVAIL [Concomitant]
     Active Substance: KETOPROFEN
     Indication: Empty sella syndrome
     Dosage: UNK
  103. ORUVAIL [Concomitant]
     Active Substance: KETOPROFEN
     Dosage: UNK
  104. ORUVAIL [Concomitant]
     Active Substance: KETOPROFEN
     Dosage: UNK
  105. FOLIC ACID [Concomitant]
     Active Substance: FOLIC ACID
     Indication: Product used for unknown indication
     Dosage: UNK
  106. FOLIC ACID [Concomitant]
     Active Substance: FOLIC ACID
     Dosage: UNK
     Route: 065
  107. FOLIC ACID [Concomitant]
     Active Substance: FOLIC ACID
     Dosage: UNK
     Route: 065
  108. FOLIC ACID [Concomitant]
     Active Substance: FOLIC ACID
     Dosage: UNK
     Route: 065
  109. FOLIC ACID [Concomitant]
     Active Substance: FOLIC ACID
     Dosage: UNK
     Route: 065
  110. FOLIC ACID [Concomitant]
     Active Substance: FOLIC ACID
     Dosage: UNK
     Route: 065
  111. FOLIC ACID [Concomitant]
     Active Substance: FOLIC ACID
     Dosage: UNK
     Route: 065
  112. LEVOTHYROXINE [Concomitant]
     Active Substance: LEVOTHYROXINE
     Indication: Abdominal discomfort
     Dosage: UNK
     Route: 065
  113. LEVOTHYROXINE [Concomitant]
     Active Substance: LEVOTHYROXINE
     Dosage: UNK
     Route: 016
  114. LEVOTHYROXINE [Concomitant]
     Active Substance: LEVOTHYROXINE
     Dosage: UNK
     Route: 065
  115. LEVOTHYROXINE [Concomitant]
     Active Substance: LEVOTHYROXINE
     Dosage: UNK
     Route: 016
  116. LEVOTHYROXINE [Concomitant]
     Active Substance: LEVOTHYROXINE
     Dosage: UNK
     Route: 065
  117. LEVOTHYROXINE [Concomitant]
     Active Substance: LEVOTHYROXINE
     Dosage: UNK
     Route: 016
  118. LEVOTHYROXINE [Concomitant]
     Active Substance: LEVOTHYROXINE
     Dosage: UNK
     Route: 016
  119. LEVOTHYROXINE [Concomitant]
     Active Substance: LEVOTHYROXINE
     Dosage: UNK
     Route: 065
  120. LEVOTHYROXINE [Concomitant]
     Active Substance: LEVOTHYROXINE
     Dosage: UNK
     Route: 016
  121. LEVOTHYROXINE [Concomitant]
     Active Substance: LEVOTHYROXINE
     Dosage: UNK
     Route: 016
  122. ACTIVATED CHARCOAL [Concomitant]
     Active Substance: ACTIVATED CHARCOAL
     Indication: Product used for unknown indication
     Dosage: 750 MG
     Route: 065
  123. ACTIVATED CHARCOAL [Concomitant]
     Active Substance: ACTIVATED CHARCOAL
     Indication: Product used for unknown indication
  124. ACTIVATED CHARCOAL [Concomitant]
     Active Substance: ACTIVATED CHARCOAL
     Indication: Product used for unknown indication
  125. AMOXICILLIN [Suspect]
     Active Substance: AMOXICILLIN
     Indication: Product used for unknown indication
     Dosage: 125 MG/ 5 ML
     Route: 065
     Dates: start: 20210904
  126. THEOPHYLLINE ANHYDROUS [Suspect]
     Active Substance: THEOPHYLLINE ANHYDROUS
     Indication: Depression
     Dosage: 750 MILLIGRAM, ONCE A DAY
     Route: 065
  127. THEOPHYLLINE ANHYDROUS [Suspect]
     Active Substance: THEOPHYLLINE ANHYDROUS
     Dosage: 750 MILLIGRAM, ONCE A DAY
     Route: 065
  128. SULFAGUANIDINE [Suspect]
     Active Substance: SULFAGUANIDINE
     Indication: Abdominal discomfort
     Dosage: 750 MG
     Route: 065
  129. SULFAGUANIDINE [Suspect]
     Active Substance: SULFAGUANIDINE
     Dosage: 750 MG, QD
     Route: 065
  130. PROBIOTICS NOS [Suspect]
     Active Substance: PROBIOTICS NOS
     Indication: Abdominal discomfort
     Dosage: 750 MG
     Route: 065
  131. PROBIOTICS NOS [Suspect]
     Active Substance: PROBIOTICS NOS
     Dosage: 750 MG
     Route: 065
  132. PROBIOTICS NOS [Suspect]
     Active Substance: PROBIOTICS NOS
     Dosage: 750 MG
     Route: 065

REACTIONS (9)
  - Pulmonary pain [Unknown]
  - Lower respiratory tract infection [Not Recovered/Not Resolved]
  - Knee arthroplasty [Unknown]
  - Arthropathy [Unknown]
  - Abdominal discomfort [Unknown]
  - Rash [Not Recovered/Not Resolved]
  - Drug abuse [Unknown]
  - Overdose [Unknown]
  - Intentional product misuse [Unknown]

NARRATIVE: CASE EVENT DATE: 20201001
